FAERS Safety Report 11784892 (Version 3)
Quarter: 2016Q4

REPORT INFORMATION
  Report Type: Report from Study
  Country: CA (occurrence: CA)
  Receive Date: 20151130
  Receipt Date: 20161025
  Transmission Date: 20170206
  Serious: Yes (Hospitalization)
  Sender: FDA-Public Use
  Company Number: CA-ROCHE-1535099

PATIENT
  Age: 83 Year
  Sex: Male
  Weight: 94.9 kg

DRUGS (15)
  1. DIAMICRON [Concomitant]
     Active Substance: GLICLAZIDE
     Indication: DIABETES MELLITUS
     Route: 065
     Dates: start: 2006
  2. SYNTHROID [Concomitant]
     Active Substance: LEVOTHYROXINE SODIUM
     Indication: HYPOTHYROIDISM
     Route: 065
     Dates: start: 1994, end: 20150302
  3. ATORVASTATIN [Concomitant]
     Active Substance: ATORVASTATIN
     Indication: HYPERLIPIDAEMIA
     Route: 065
     Dates: start: 2006
  4. NOVOLIN GE [Concomitant]
     Indication: DIABETES MELLITUS
     Route: 065
     Dates: start: 2014
  5. MINOCYCLINE [Concomitant]
     Active Substance: MINOCYCLINE\MINOCYCLINE HYDROCHLORIDE
     Indication: DERMATITIS ACNEIFORM
     Route: 065
     Dates: start: 20150107
  6. ATEZOLIZUMAB [Suspect]
     Active Substance: ATEZOLIZUMAB
     Indication: NEOPLASM
     Dosage: MOST RECENT DOSE GIVEN PRIOR TO SAE ON 19/JAN/2015
     Route: 042
     Dates: start: 20141212
  7. INDAPAMIDE. [Concomitant]
     Active Substance: INDAPAMIDE
     Indication: HYPERTENSION
     Route: 065
     Dates: start: 2008
  8. FUROSEMIDE. [Concomitant]
     Active Substance: FUROSEMIDE
     Indication: HYPERTENSION
     Route: 065
     Dates: start: 2008
  9. INDERAL LA [Concomitant]
     Active Substance: PROPRANOLOL HYDROCHLORIDE
     Indication: HYPERTENSION
     Route: 065
     Dates: start: 1994, end: 20150403
  10. MOTRIN [Concomitant]
     Active Substance: IBUPROFEN
     Indication: BACK PAIN
     Route: 065
     Dates: start: 20141207
  11. COBIMETINIB [Suspect]
     Active Substance: COBIMETINIB
     Indication: NEOPLASM
     Dosage: MOST RECENT DOSE 40MG GIVEN PRIOR TO SAE ON 01/FEB/2015
     Route: 048
     Dates: start: 20141224
  12. JANUVIA [Concomitant]
     Active Substance: SITAGLIPTIN PHOSPHATE
     Indication: DIABETES MELLITUS
     Route: 065
     Dates: start: 2006
  13. FUROSEMIDE. [Concomitant]
     Active Substance: FUROSEMIDE
     Route: 065
     Dates: start: 2008
  14. ASA [Concomitant]
     Active Substance: ASPIRIN
     Route: 065
     Dates: start: 2009
  15. ACETAMINOPHEN. [Concomitant]
     Active Substance: ACETAMINOPHEN
     Indication: BACK PAIN
     Route: 065
     Dates: start: 20141207

REACTIONS (1)
  - Pulmonary embolism [Recovered/Resolved]

NARRATIVE: CASE EVENT DATE: 20150203
